FAERS Safety Report 7863043-1 (Version None)
Quarter: 2011Q4

REPORT INFORMATION
  Report Type: 
  Country: None (occurrence: None)
  Receive Date: 20111027
  Receipt Date: 20101124
  Transmission Date: 20120403
  Serious: No
  Sender: FDA-Public Use
  Company Number: US-AMGEN-USASP2010006191

PATIENT
  Age: 48 Year
  Sex: Female
  Weight: 148 kg

DRUGS (10)
  1. ENBREL [Suspect]
     Indication: PRODUCT USED FOR UNKNOWN INDICATION
     Dosage: 50 MG, QWK
  2. ALBUTEROL [Concomitant]
     Dosage: 90 A?G, UNK
  3. LEUCOVORIN CALCIUM [Concomitant]
     Dosage: 200 MG, UNK
  4. MORPHINE SULFATE [Concomitant]
     Dosage: 10 MG, UNK
  5. PANTOPRAZOLE [Concomitant]
     Dosage: 20 MG, UNK
  6. COMBIVENT [Concomitant]
  7. FUROSEMIDE [Concomitant]
     Dosage: 20 MG, UNK
  8. LYRICA [Concomitant]
     Dosage: 50 MG, UNK
  9. OXYCODONE HCL [Concomitant]
     Dosage: 5 MG, UNK
  10. METHOTREXATE [Concomitant]

REACTIONS (1)
  - INJECTION SITE DISCOMFORT [None]
